FAERS Safety Report 4667325-6 (Version None)
Quarter: 2005Q2

REPORT INFORMATION
  Report Type: 
  Country: None (occurrence: None)
  Receive Date: 20050520
  Receipt Date: 20041005
  Transmission Date: 20051028
  Serious: Yes (Other)
  Sender: FDA-Public Use
  Company Number: PHEH2004US10712

PATIENT
  Age: 77 Year
  Sex: Female

DRUGS (1)
  1. ZOMETA [Suspect]
     Indication: HODGKIN'S DISEASE
     Dosage: UNK, UNK
     Dates: start: 20030101, end: 20030101

REACTIONS (9)
  - IMPAIRED HEALING [None]
  - INFECTION [None]
  - JAW DISORDER [None]
  - OSTEONECROSIS [None]
  - PERIODONTITIS [None]
  - POST PROCEDURAL HAEMORRHAGE [None]
  - SURGERY [None]
  - TOOTH EXTRACTION [None]
  - WOUND DEBRIDEMENT [None]
